FAERS Safety Report 17605812 (Version 1)
Quarter: 2020Q1

REPORT INFORMATION
  Report Type: Spontaneous
  Country: US (occurrence: US)
  Receive Date: 20200331
  Receipt Date: 20200331
  Transmission Date: 20200409
  Serious: No
  Sender: FDA-Public Use
  Company Number: None

PATIENT
  Sex: Female

DRUGS (1)
  1. MYRBETRIQ [Suspect]
     Active Substance: MIRABEGRON

REACTIONS (9)
  - Visual impairment [None]
  - Dyspnoea [None]
  - Abdominal pain upper [None]
  - Dry mouth [None]
  - Nasal discomfort [None]
  - Dysphagia [None]
  - Dizziness [None]
  - Back pain [None]
  - Oropharyngeal pain [None]
